FAERS Safety Report 6829135-0 (Version None)
Quarter: 2010Q3

REPORT INFORMATION
  Report Type: 
  Country: None (occurrence: None)
  Receive Date: 20100706
  Receipt Date: 20100618
  Transmission Date: 20110219
  Serious: Yes (Hospitalization)
  Sender: FDA-Public Use
  Company Number: 2010002531

PATIENT
  Sex: Female

DRUGS (4)
  1. TARCEVA [Suspect]
     Indication: LUNG ADENOCARCINOMA
     Dosage: QD, ORAL
     Route: 048
     Dates: start: 20100527, end: 20100602
  2. AMLODIPINE [Concomitant]
  3. FAMOTIDINE [Concomitant]
  4. DECADRON [Concomitant]

REACTIONS (3)
  - C-REACTIVE PROTEIN ABNORMAL [None]
  - DRUG RASH WITH EOSINOPHILIA AND SYSTEMIC SYMPTOMS [None]
  - HEPATIC FUNCTION ABNORMAL [None]
